FAERS Safety Report 23395927 (Version 1)
Quarter: 2024Q1

REPORT INFORMATION
  Report Type: Spontaneous
  Country: US (occurrence: US)
  Receive Date: 20240112
  Receipt Date: 20240112
  Transmission Date: 20240410
  Serious: No
  Sender: FDA-Public Use
  Company Number: ENDG23-00475

PATIENT
  Age: 60 Year
  Sex: Female

DRUGS (12)
  1. METHYLPREDNISOLONE [Suspect]
     Active Substance: METHYLPREDNISOLONE
     Indication: Post-acute COVID-19 syndrome
     Dosage: 6 DF, OD (6 TABLETS ON THE FIRST DAY AND THAN REDUCE ONE TABLET EACH DAY)
     Route: 048
     Dates: start: 20230125
  2. MUCINEX [Concomitant]
     Active Substance: GUAIFENESIN
     Indication: Cough
     Dosage: UNK UNKNOWN, UNKNOWN
     Route: 065
  3. LORATADINE [Concomitant]
     Active Substance: LORATADINE
     Indication: Product used for unknown indication
     Dosage: 10 MG, UNKNOWN (ONE IN THE MORNING)
     Route: 065
  4. LEVOTHYROXINE [Concomitant]
     Active Substance: LEVOTHYROXINE
     Indication: Product used for unknown indication
     Dosage: 75 ?G, UNKNOWN (ONE IN THE MORNING)
     Route: 065
  5. DULOXETINE HYDROCHLORIDE [Concomitant]
     Active Substance: DULOXETINE HYDROCHLORIDE
     Indication: Product used for unknown indication
     Dosage: 60 MG, UNKNOWN (ONE IN THE MORNING)
     Route: 065
  6. OSTEO BI-FLEX                      /01431201/ [Concomitant]
     Indication: Product used for unknown indication
     Dosage: UNK UNKNOWN, UNKNOWN (TWO AT NIGHT)
     Route: 065
  7. CLONAZEPAM [Concomitant]
     Active Substance: CLONAZEPAM
     Indication: Product used for unknown indication
     Dosage: 1 MG, UNKNOWN (ONE IN THE MORNING AND ONE AT NIGHT)
     Route: 065
  8. QUETIAPINE FUMARATE [Concomitant]
     Active Substance: QUETIAPINE FUMARATE
     Indication: Product used for unknown indication
     Dosage: 100 MG, UNKNOWN (ONE IN NIGHT)
     Route: 065
  9. BANOPHEN [Concomitant]
     Active Substance: DIPHENHYDRAMINE HYDROCHLORIDE
     Indication: Product used for unknown indication
     Dosage: 100 MG, UNKNOWN (TWO AT NIGHT)
     Route: 065
  10. ATORVASTATIN [Concomitant]
     Active Substance: ATORVASTATIN
     Indication: Product used for unknown indication
     Dosage: 20 MG, UNKNOWN (ONE AT NIGHT)
     Route: 065
  11. MELATONIN [Concomitant]
     Active Substance: MELATONIN
     Indication: Product used for unknown indication
     Dosage: 8 MG, UNKNOWN (ONE AT NIGHT)
     Route: 065
  12. VELSTRIGO [Concomitant]
     Indication: Product used for unknown indication
     Dosage: UNK UNKNOWN, UNKNOWN (100/300/300 TABLETS ONE IN THE MORNING)
     Route: 065

REACTIONS (3)
  - Flushing [Unknown]
  - Feeling hot [Unknown]
  - Off label use [Unknown]

NARRATIVE: CASE EVENT DATE: 20230125
